FAERS Safety Report 13610796 (Version 1)
Quarter: 2017Q2

REPORT INFORMATION
  Report Type: Spontaneous
  Country: US (occurrence: US)
  Receive Date: 20170605
  Receipt Date: 20170605
  Transmission Date: 20170830
  Serious: No
  Sender: FDA-Public Use
  Company Number: US-GLAXOSMITHKLINE-US2017082821

PATIENT
  Sex: Female

DRUGS (5)
  1. ASPIRIN. [Concomitant]
     Active Substance: ASPIRIN
  2. PROVENTIL [Concomitant]
     Active Substance: ALBUTEROL
  3. LISINOPRIL. [Concomitant]
     Active Substance: LISINOPRIL
  4. CRESTOR [Concomitant]
     Active Substance: ROSUVASTATIN CALCIUM
  5. VENTOLIN HFA [Suspect]
     Active Substance: ALBUTEROL SULFATE
     Indication: ASTHMA
     Dosage: 1 PUFF(S), PRN
     Route: 055
     Dates: start: 201703

REACTIONS (2)
  - Wrong technique in product usage process [Unknown]
  - Chest pain [Not Recovered/Not Resolved]
